FAERS Safety Report 8644029 (Version 3)
Quarter: 2012Q4

REPORT INFORMATION
  Report Type: 
  Country: US (occurrence: US)
  Receive Date: 20120629
  Receipt Date: 20121011
  Transmission Date: 20130627
  Serious: Yes (Death, Hospitalization)
  Sender: FDA-Public Use
  Company Number: US-GLAXOSMITHKLINE-A0982723A

PATIENT
  Age: 53 Year
  Sex: Female

DRUGS (1)
  1. FLOLAN [Suspect]
     Indication: PRODUCT USED FOR UNKNOWN INDICATION
     Dosage: 43NG Continuous
     Dates: start: 20110406, end: 20120906

REACTIONS (2)
  - Pulmonary hypertension [Unknown]
  - Death [Fatal]
